FAERS Safety Report 8845814 (Version 1)
Quarter: 2012Q4

REPORT INFORMATION
  Report Type: 
  Country: US (occurrence: US)
  Receive Date: 20121017
  Receipt Date: 20121017
  Transmission Date: 20130627
  Serious: Yes (Death, Other)
  Sender: FDA-Public Use
  Company Number: US-ROCHE-1094292

PATIENT
  Sex: Male

DRUGS (2)
  1. XELODA [Suspect]
     Indication: COLON CANCER
     Route: 048
     Dates: start: 20101027, end: 20110316
  2. XELODA [Suspect]
     Indication: METASTASES TO LIVER

REACTIONS (4)
  - Death [Fatal]
  - Abdominal distension [Unknown]
  - General physical health deterioration [Unknown]
  - Back pain [Unknown]
